FAERS Safety Report 15233323 (Version 1)
Quarter: 2018Q3

REPORT INFORMATION
  Report Type: Spontaneous
  Country: US (occurrence: US)
  Receive Date: 20180709
  Receipt Date: 20180709
  Transmission Date: 20181010
  Serious: Yes (Other)
  Sender: FDA-Public Use
  Company Number: None

PATIENT
  Age: 28 Year
  Sex: Female
  Weight: 73.03 kg

DRUGS (1)
  1. NEXPLANON [Suspect]
     Active Substance: ETONOGESTREL
     Indication: CONTRACEPTION

REACTIONS (10)
  - Presyncope [None]
  - Pallor [None]
  - Anxiety [None]
  - Dysarthria [None]
  - Haemorrhage [None]
  - Blindness [None]
  - Dizziness [None]
  - Head discomfort [None]
  - Hypoacusis [None]
  - Paraesthesia [None]

NARRATIVE: CASE EVENT DATE: 20160110
